FAERS Safety Report 21154242 (Version 1)
Quarter: 2022Q3

REPORT INFORMATION
  Report Type: Spontaneous
  Country: US (occurrence: US)
  Receive Date: 20220801
  Receipt Date: 20220801
  Transmission Date: 20221026
  Serious: Yes (Other)
  Sender: FDA-Public Use
  Company Number: US-TEVA-2022-US-2059112

PATIENT
  Age: 20 Year
  Sex: Male

DRUGS (1)
  1. GUANFACINE HYDROCHLORIDE [Suspect]
     Active Substance: GUANFACINE HYDROCHLORIDE
     Indication: Attention deficit hyperactivity disorder
     Route: 065

REACTIONS (5)
  - Choking [Unknown]
  - Oesophageal stenosis [Recovered/Resolved]
  - Eosinophilic oesophagitis [Recovered/Resolved]
  - Product use issue [Unknown]
  - Contraindicated product administered [Unknown]
